FAERS Safety Report 7906698-5 (Version None)
Quarter: 2011Q4

REPORT INFORMATION
  Report Type: 
  Country: None (occurrence: None)
  Receive Date: 20111109
  Receipt Date: 20111109
  Transmission Date: 20120403
  Serious: Yes (Other)
  Sender: FDA-Public Use
  Company Number: None

PATIENT
  Age: 68 Year
  Sex: Female
  Weight: 77.1115 kg

DRUGS (1)
  1. PROVIGIL [Suspect]
     Indication: NARCOLEPSY
     Dosage: 100 MG 1 TO 2 DAILY MAIL ORDER MEDCO
     Dates: start: 20110801, end: 20110901

REACTIONS (7)
  - DRUG INEFFECTIVE [None]
  - PRODUCT TASTE ABNORMAL [None]
  - NAUSEA [None]
  - ASTHENIA [None]
  - PRODUCT ODOUR ABNORMAL [None]
  - VISION BLURRED [None]
  - MALAISE [None]
